FAERS Safety Report 14740373 (Version 1)
Quarter: 2018Q2

REPORT INFORMATION
  Report Type: Report from Study
  Country: CO (occurrence: CO)
  Receive Date: 20180410
  Receipt Date: 20180410
  Transmission Date: 20180711
  Serious: Yes (Death, Hospitalization)
  Sender: FDA-Public Use
  Company Number: PHHY2018CO039916

PATIENT
  Age: 43 Year
  Sex: Male

DRUGS (2)
  1. AFINITOR [Suspect]
     Active Substance: EVEROLIMUS
     Dosage: 10 MG, QD
     Route: 048
     Dates: start: 20180302, end: 20180318
  2. AFINITOR [Suspect]
     Active Substance: EVEROLIMUS
     Indication: RENAL CELL CARCINOMA
     Dosage: 10 MG, QD
     Route: 048
     Dates: start: 20180223

REACTIONS (7)
  - Diarrhoea [Not Recovered/Not Resolved]
  - Dehydration [Unknown]
  - Wound [Recovered/Resolved]
  - Cough [Unknown]
  - Malaise [Unknown]
  - Death [Fatal]
  - Stomatitis [Unknown]

NARRATIVE: CASE EVENT DATE: 20180223
